FAERS Safety Report 20654290 (Version 1)
Quarter: 2022Q1

REPORT INFORMATION
  Report Type: Report from Study
  Country: IN (occurrence: IN)
  Receive Date: 20220330
  Receipt Date: 20220330
  Transmission Date: 20220423
  Serious: Yes (Hospitalization, Other)
  Sender: FDA-Public Use
  Company Number: IN-NOVARTISPH-NVSC2020IN046295

PATIENT
  Age: 62 Year
  Sex: Male

DRUGS (26)
  1. SIMULECT [Suspect]
     Active Substance: BASILIXIMAB
     Indication: Renal transplant
     Dosage: 20 MG
     Route: 065
     Dates: start: 20200122
  2. SIMULECT [Suspect]
     Active Substance: BASILIXIMAB
     Dosage: 2 MG
     Route: 065
     Dates: start: 20200122
  3. SIMULECT [Suspect]
     Active Substance: BASILIXIMAB
     Dosage: 2 MG
     Route: 065
     Dates: start: 20200126
  4. SIMULECT [Suspect]
     Active Substance: BASILIXIMAB
     Dosage: 20 MG
     Route: 065
     Dates: start: 20200126, end: 20200126
  5. CELLCEPT [Concomitant]
     Active Substance: MYCOPHENOLATE MOFETIL
     Indication: Product used for unknown indication
     Dosage: 360 MG, BID
     Route: 065
  6. PROLOMET [Concomitant]
     Indication: Product used for unknown indication
     Dosage: UNK, BID
     Route: 065
  7. RANITIDINE HYDROCHLORIDE [Concomitant]
     Active Substance: RANITIDINE HYDROCHLORIDE
     Indication: Product used for unknown indication
     Dosage: 150 MG, BID
     Route: 065
  8. TACROLIMUS [Concomitant]
     Active Substance: TACROLIMUS
     Indication: Product used for unknown indication
     Dosage: 2 DOSAGE FORM, BID FOR 1 WEEK, AFTER MEAL (2-0-2)
     Route: 048
  9. TACROLIMUS [Concomitant]
     Active Substance: TACROLIMUS
     Dosage: 138 MEQ/L
     Route: 065
     Dates: start: 20200124
  10. MYCOPHENOLATE MOFETIL [Concomitant]
     Active Substance: MYCOPHENOLATE MOFETIL
     Indication: Product used for unknown indication
     Dosage: 1 DOSAGE FORM, TID FOR 1 WEEK, AFTER MEAL (2-1-1)
     Route: 048
  11. PREDNISOLONE [Concomitant]
     Active Substance: PREDNISOLONE
     Indication: Product used for unknown indication
     Dosage: 2 DOSAGE FORM, QD, AFTER BREAKFAST, FOR 1 WEEK (2-0-0)
     Route: 048
  12. VALGANCICLOVIR HYDROCHLORIDE [Concomitant]
     Active Substance: VALGANCICLOVIR HYDROCHLORIDE
     Indication: Product used for unknown indication
     Dosage: 1 DOSAGE FORM, QD, AFTER BREAKFAST, FOR 1 WEEK (1-0-0)
     Route: 048
  13. SEPTRA DS [Concomitant]
     Active Substance: SULFAMETHOXAZOLE\TRIMETHOPRIM
     Indication: Product used for unknown indication
     Dosage: 1 DOSAGE FORM (160+800), QD AFTER DINNER, FOR 1 WEEK (0-0-1)
     Route: 048
  14. DOMPERIDONE\ESOMEPRAZOLE MAGNESIUM [Concomitant]
     Active Substance: DOMPERIDONE\ESOMEPRAZOLE MAGNESIUM
     Indication: Product used for unknown indication
     Dosage: 1 DOSAGE FORM, QD, FOR 1 WEEK BEFORE BREAKFAST (1-0-0)
     Route: 048
  15. IVABRAD [Concomitant]
     Indication: Product used for unknown indication
     Dosage: 1 DOSAGE FORM, BID, AFTER MEAL, FOR 1 WEEK (1-0-1)
     Route: 048
  16. CHYMORAL [Concomitant]
     Active Substance: CHYMOTRYPSIN\TRYPSIN
     Indication: Product used for unknown indication
     Dosage: 1 DOSAGE FORM (100000 AU), TID, BEFORE MEAL, FOR 1 WEEK (1-1-1)
     Route: 048
  17. INSULIN ASPART [Concomitant]
     Active Substance: INSULIN ASPART
     Indication: Product used for unknown indication
     Dosage: 1 DOSAGE FORM (1 VIAL), BID, BEFORE MEAL, FOR 1 WEEK (10-0-6 UNITS)
     Route: 058
  18. METFORMIN HYDROCHLORIDE [Concomitant]
     Active Substance: METFORMIN HYDROCHLORIDE
     Indication: Product used for unknown indication
     Dosage: 1 DOSAGE FORM, BID, AFTER MEAL FOR 1 WEEK (1-0-1)
     Route: 048
  19. AZTOR [Concomitant]
     Indication: Product used for unknown indication
     Dosage: 1 DOSAGE FORM, QD, AFTER DINNER, FOR 1 WEEK (0-0-1)
     Route: 048
  20. ASPIRIN [Concomitant]
     Active Substance: ASPIRIN
     Indication: Product used for unknown indication
     Dosage: 1 DOSAGE FORM, QD (1-0-0) TILL RVIEW
     Route: 065
  21. CEFTUM [Concomitant]
     Indication: Product used for unknown indication
     Dosage: 2 DOSAGE FORM, BID (1-0-1) FOR 3 DAYS
     Route: 065
  22. ROSUVASTATIN CALCIUM [Concomitant]
     Active Substance: ROSUVASTATIN CALCIUM
     Indication: Product used for unknown indication
     Dosage: 1 DOSAGE FORM, QD (0-0-1)
     Route: 065
  23. BASILIXIMAB [Concomitant]
     Active Substance: BASILIXIMAB
     Indication: Product used for unknown indication
     Dosage: 20 MG
     Route: 065
  24. METHYLPREDNISOLONE [Concomitant]
     Active Substance: METHYLPREDNISOLONE
     Indication: Product used for unknown indication
     Dosage: UNK
     Route: 065
  25. TACROLIMUS [Concomitant]
     Active Substance: TACROLIMUS
     Indication: Product used for unknown indication
     Dosage: UNK
     Route: 065
  26. MYCOPHENOLATE MOFETIL HYDROCHLORIDE [Concomitant]
     Active Substance: MYCOPHENOLATE MOFETIL HYDROCHLORIDE
     Indication: Product used for unknown indication
     Dosage: UNK
     Route: 065

REACTIONS (18)
  - Kidney transplant rejection [Unknown]
  - Transplant rejection [Recovered/Resolved]
  - End stage renal disease [Unknown]
  - Type 2 diabetes mellitus [Unknown]
  - Mitral valve incompetence [Unknown]
  - Aortic valve incompetence [Unknown]
  - Tricuspid valve incompetence [Unknown]
  - Pulmonary arterial hypertension [Unknown]
  - Hypertension [Unknown]
  - Left ventricular hypertrophy [Unknown]
  - Left atrial enlargement [Unknown]
  - Aortic valve sclerosis [Unknown]
  - Pulmonary arterial pressure abnormal [Unknown]
  - Left ventricular dysfunction [Unknown]
  - Pleural effusion [Unknown]
  - Abdominal distension [Recovering/Resolving]
  - Haematuria [Unknown]
  - Blood pressure increased [Unknown]

NARRATIVE: CASE EVENT DATE: 20200128
